FAERS Safety Report 19780488 (Version 1)
Quarter: 2021Q3

REPORT INFORMATION
  Report Type: Spontaneous
  Country: CN (occurrence: CN)
  Receive Date: 20210902
  Receipt Date: 20210902
  Transmission Date: 20211014
  Serious: Yes (Hospitalization)
  Sender: FDA-Public Use
  Company Number: CN-TOPROL-2021000180

PATIENT
  Age: 86 Year
  Sex: Female

DRUGS (1)
  1. METOPROLOL SUCCINATE. [Suspect]
     Active Substance: METOPROLOL SUCCINATE
     Route: 048
     Dates: start: 20210224, end: 20210805

REACTIONS (2)
  - Product use in unapproved indication [Recovered/Resolved]
  - Atrioventricular block complete [Recovering/Resolving]

NARRATIVE: CASE EVENT DATE: 20210224
